FAERS Safety Report 18889613 (Version 1)
Quarter: 2021Q1

REPORT INFORMATION
  Report Type: Spontaneous
  Country: US (occurrence: US)
  Receive Date: 20210213
  Receipt Date: 20210213
  Transmission Date: 20210420
  Serious: No
  Sender: FDA-Public Use
  Company Number: US-TEVA-2021-US-1875875

PATIENT
  Age: 71 Year
  Sex: Male

DRUGS (1)
  1. TESTOSTERONE TEVA [Suspect]
     Active Substance: TESTOSTERONE
     Dosage: USING THIS MEDICATION FOR A LITTLE OVER THREE MONTHS
     Route: 061

REACTIONS (3)
  - Urine output decreased [Not Recovered/Not Resolved]
  - Colitis [Not Recovered/Not Resolved]
  - Product administered at inappropriate site [Unknown]
